FAERS Safety Report 7318026-7 (Version None)
Quarter: 2011Q1

REPORT INFORMATION
  Report Type: 
  Country: None (occurrence: None)
  Receive Date: 20110227
  Receipt Date: 20110222
  Transmission Date: 20110831
  Serious: Yes (Other)
  Sender: FDA-Public Use
  Company Number: FR-BRISTOL-MYERS SQUIBB COMPANY-15561558

PATIENT
  Age: 29 Year
  Sex: Male

DRUGS (3)
  1. REYATAZ [Suspect]
     Indication: HIV INFECTION
     Dosage: I DF=REYATAZ 200 MG (ATAZANAVIR) 2 CAPSULES
     Dates: start: 20090101
  2. KETODERM [Concomitant]
     Dates: start: 20110207
  3. DOMPERIDONE [Concomitant]
     Dates: start: 20110207

REACTIONS (1)
  - TENDON RUPTURE [None]
